FAERS Safety Report 4641564-2 (Version None)
Quarter: 2005Q2

REPORT INFORMATION
  Report Type: 
  Country: None (occurrence: None)
  Receive Date: 20050420
  Receipt Date: 20050331
  Transmission Date: 20051028
  Serious: Yes (Hospitalization, Other)
  Sender: FDA-Public Use
  Company Number: USA050494621

PATIENT
  Age: 61 Year
  Sex: Female

DRUGS (1)
  1. FORTEO [Suspect]
     Indication: OSTEOPOROSIS
     Dates: start: 20041201, end: 20050217

REACTIONS (6)
  - ANAEMIA [None]
  - COLONOSCOPY ABNORMAL [None]
  - DYSPNOEA [None]
  - ENDOSCOPY ABNORMAL [None]
  - MOBILITY DECREASED [None]
  - MYOCARDIAL INFARCTION [None]
